FAERS Safety Report 8842835 (Version 1)
Quarter: 2012Q4

REPORT INFORMATION
  Report Type: 
  Country: US (occurrence: US)
  Receive Date: 20121016
  Receipt Date: 20121016
  Transmission Date: 20130627
  Serious: Yes (Hospitalization)
  Sender: FDA-Public Use
  Company Number: US-B.I. PHARMACEUTICALS,INC./RIDGEFIELD-2012-BP-25161BP

PATIENT
  Age: 62 Year
  Sex: Female

DRUGS (1)
  1. ZANTAC COOL MINT (TABLETS) [Suspect]
     Indication: GASTROOESOPHAGEAL REFLUX PROPHYLAXIS
     Dosage: 300 mg
     Route: 048
     Dates: start: 201110

REACTIONS (2)
  - Laryngeal stenosis [Unknown]
  - Abdominal discomfort [Not Recovered/Not Resolved]
